FAERS Safety Report 12432003 (Version 1)
Quarter: 2016Q2

REPORT INFORMATION
  Report Type: Spontaneous
  Country: US (occurrence: US)
  Receive Date: 20160603
  Receipt Date: 20160603
  Transmission Date: 20160815
  Serious: No
  Sender: FDA-Public Use
  Company Number: US-WEST-WARD PHARMACEUTICALS CORP.-US-H14001-15-01683

PATIENT
  Age: 9 Year
  Sex: Female
  Weight: 32.69 kg

DRUGS (3)
  1. DOXYCYCLINE HYCLATE. [Suspect]
     Active Substance: DOXYCYCLINE HYCLATE
     Indication: LYME DISEASE
     Route: 048
     Dates: start: 20150719, end: 201508
  2. FLUORIDE [Concomitant]
     Active Substance: SODIUM FLUORIDE
     Indication: PRODUCT USED FOR UNKNOWN INDICATION
     Route: 065
  3. VITAMINE [Concomitant]
     Indication: PRODUCT USED FOR UNKNOWN INDICATION
     Route: 065

REACTIONS (2)
  - Nail discolouration [Not Recovered/Not Resolved]
  - Sunburn [Recovered/Resolved]

NARRATIVE: CASE EVENT DATE: 2015
